FAERS Safety Report 6507307-2 (Version None)
Quarter: 2009Q4

REPORT INFORMATION
  Report Type: 
  Country: None (occurrence: None)
  Receive Date: 20091216
  Receipt Date: 20091130
  Transmission Date: 20100525
  Serious: Yes (Other)
  Sender: FDA-Public Use
  Company Number: SPV1-2009-02415

PATIENT
  Sex: Male

DRUGS (2)
  1. VYVANSE [Suspect]
     Dosage: ONE DOSE, ORAL
     Route: 048
     Dates: start: 20091012, end: 20091012
  2. CLONAZEPAM [Suspect]
     Dosage: ONE DOSE, ORAL
     Route: 048
     Dates: start: 20091012, end: 20091012

REACTIONS (7)
  - ALCOHOL USE [None]
  - DRUG ABUSE [None]
  - DRUG DIVERSION [None]
  - INTENTIONAL OVERDOSE [None]
  - POISONING [None]
  - SELF-MEDICATION [None]
  - THEFT [None]
